FAERS Safety Report 7071228-X (Version None)
Quarter: 2010Q4

REPORT INFORMATION
  Report Type: 
  Country: None (occurrence: None)
  Receive Date: 20101028
  Receipt Date: 20101028
  Transmission Date: 20110411
  Serious: Yes (Other)
  Sender: FDA-Public Use
  Company Number: None

PATIENT
  Age: 2 Month
  Sex: Male
  Weight: 4.9896 kg

DRUGS (1)
  1. HYLANDS THEETHING TABLETS HOMEOPATHIC HYLAND [Suspect]
     Indication: TEETHING
     Dates: start: 20101015, end: 20101024

REACTIONS (2)
  - CONSTIPATION [None]
  - SOMNOLENCE [None]
